FAERS Safety Report 8759610 (Version 1)
Quarter: 2012Q4

REPORT INFORMATION
  Report Type: 
  Country: AU (occurrence: US)
  Receive Date: 20120829
  Receipt Date: 20120829
  Transmission Date: 20130627
  Serious: Yes (Death, Hospitalization, Disabling, Other)
  Sender: FDA-Public Use
  Company Number: US-009507513-0609USA01253

PATIENT

DRUGS (8)
  1. FOSAMAX [Suspect]
     Indication: OSTEOPOROSIS
     Dosage: 10 mg, UNK
     Route: 048
     Dates: start: 19970710, end: 19980315
  2. FOSAMAX [Suspect]
     Indication: OSTEOPENIA
     Dosage: 70 mg, UNK
     Route: 048
     Dates: start: 19981207, end: 20060224
  3. SYNTHROID [Concomitant]
     Dosage: 100  mg, qd
     Route: 048
  4. MK-9278 [Concomitant]
  5. AMBIEN [Concomitant]
     Dosage: 12 mg, hs
     Route: 048
  6. DELESTROGEN [Concomitant]
  7. MK-0966 [Concomitant]
     Indication: ARTHRITIS
  8. ZOLOFT [Concomitant]

REACTIONS (80)
  - Osteonecrosis of jaw [Not Recovered/Not Resolved]
  - Osteomyelitis [Not Recovered/Not Resolved]
  - Peripheral vascular disorder [Unknown]
  - Lethargy [Unknown]
  - Arthralgia [Unknown]
  - Spinal osteoarthritis [Not Recovered/Not Resolved]
  - Neck pain [Unknown]
  - Dyspnoea exertional [Not Recovered/Not Resolved]
  - Angioedema [Unknown]
  - Myalgia [Unknown]
  - Diabetes mellitus [Unknown]
  - Malaise [Unknown]
  - Sinusitis [Unknown]
  - Plasma cell myeloma [Not Recovered/Not Resolved]
  - Jaw fracture [Not Recovered/Not Resolved]
  - Radiculopathy [Unknown]
  - Stress fracture [Unknown]
  - Abdominal adhesions [Unknown]
  - Aortic calcification [Unknown]
  - Vascular calcification [Unknown]
  - Hepatic cirrhosis [Unknown]
  - Haemorrhoids [Unknown]
  - Otitis externa [Recovered/Resolved]
  - Device related infection [Unknown]
  - Bladder mass [Unknown]
  - Actinomycotic skin infection [Recovered/Resolved]
  - Pseudomonas infection [Unknown]
  - Upper respiratory tract infection [Unknown]
  - Pernicious anaemia [Unknown]
  - Bronchitis [Unknown]
  - Deep vein thrombosis [Unknown]
  - Dental fistula [Not Recovered/Not Resolved]
  - Fistula [Unknown]
  - Alcohol use [Unknown]
  - Oral infection [Unknown]
  - Abscess [Unknown]
  - Fistula discharge [Not Recovered/Not Resolved]
  - Periodontal disease [Unknown]
  - Gastrooesophageal reflux disease [Unknown]
  - Dilatation intrahepatic duct acquired [Unknown]
  - Gallbladder enlargement [Not Recovered/Not Resolved]
  - Intestinal dilatation [Unknown]
  - Aortic arteriosclerosis [Unknown]
  - Peripheral artery stenosis [Unknown]
  - Femur fracture [Unknown]
  - Radius fracture [Unknown]
  - Cataract [Unknown]
  - Cerebral ischaemia [Unknown]
  - Pancreatic disorder [Unknown]
  - Hyponatraemia [Recovered/Resolved]
  - Confusional state [Recovering/Resolving]
  - Dementia [Recovering/Resolving]
  - Dementia [Recovering/Resolving]
  - Drug dependence [Unknown]
  - Urinary retention [Unknown]
  - Decubitus ulcer [Unknown]
  - Pubis fracture [Unknown]
  - Weight decreased [Not Recovered/Not Resolved]
  - Biliary dilatation [Not Recovered/Not Resolved]
  - Blood alkaline phosphatase increased [Unknown]
  - Wrist fracture [Unknown]
  - Nasopharyngitis [Unknown]
  - Cough [Unknown]
  - Asthenia [Unknown]
  - Fall [Unknown]
  - Failure to thrive [Not Recovered/Not Resolved]
  - Dehydration [Not Recovered/Not Resolved]
  - Electrolyte imbalance [Unknown]
  - Pleural effusion [Unknown]
  - Anaemia of chronic disease [Not Recovered/Not Resolved]
  - Hypothyroidism [Unknown]
  - Actinomycosis [Not Recovered/Not Resolved]
  - Abscess oral [Unknown]
  - Anaemia vitamin B12 deficiency [Unknown]
  - Pneumonia aspiration [Fatal]
  - Sepsis [Fatal]
  - Malnutrition [Unknown]
  - Chronic obstructive pulmonary disease [Unknown]
  - Mental status changes [Unknown]
  - Hypokalaemia [Unknown]
